FAERS Safety Report 21771833 (Version 1)
Quarter: 2022Q4

REPORT INFORMATION
  Report Type: Spontaneous
  Country: US (occurrence: None)
  Receive Date: 20221222
  Receipt Date: 20221222
  Transmission Date: 20230112
  Serious: Yes (Other)
  Sender: FDA-Public Use
  Company Number: None

PATIENT
  Age: 58 Year
  Sex: Male
  Weight: 81 kg

DRUGS (8)
  1. EVRYSDI [Suspect]
     Active Substance: RISDIPLAM
     Indication: Spinal muscular atrophy
     Dosage: OTHER QUANTITY : 6.6 SYRINGE;?FREQUENCY : DAILY;?
     Route: 048
     Dates: start: 20220721, end: 20221221
  2. METFORMIN [Concomitant]
     Active Substance: METFORMIN HYDROCHLORIDE
  3. GLYBURIDE [Concomitant]
     Active Substance: GLYBURIDE
  4. FARXIGA [Concomitant]
     Active Substance: DAPAGLIFLOZIN PROPANEDIOL
  5. PENTOXIFYLLINE [Concomitant]
     Active Substance: PENTOXIFYLLINE
  6. SILDENAFIL [Concomitant]
     Active Substance: SILDENAFIL
  7. ATORVASTATIN [Concomitant]
     Active Substance: ATORVASTATIN
  8. Multi-vitamin suppliment [Concomitant]

REACTIONS (1)
  - Muscular weakness [None]

NARRATIVE: CASE EVENT DATE: 20221221
